FAERS Safety Report 9829809 (Version 1)
Quarter: 2014Q1

REPORT INFORMATION
  Report Type: Report from Study
  Country: US (occurrence: US)
  Receive Date: 20140120
  Receipt Date: 20140120
  Transmission Date: 20141002
  Serious: Yes (Other)
  Sender: FDA-Public Use
  Company Number: US-ROCHE-1335105

PATIENT
  Sex: Female
  Weight: 75.36 kg

DRUGS (6)
  1. HERCEPTIN [Suspect]
     Indication: BREAST CANCER
     Route: 065
     Dates: start: 201303
  2. HERCEPTIN [Suspect]
     Indication: METASTASES TO BONE
     Route: 042
     Dates: start: 20130725
  3. PERJETA [Suspect]
     Indication: BREAST CANCER
     Route: 065
     Dates: start: 201303
  4. PERJETA [Suspect]
     Indication: METASTASES TO BONE
     Route: 042
     Dates: start: 20130725
  5. TAXOTERE [Concomitant]
  6. FISH OIL [Concomitant]
     Route: 048

REACTIONS (1)
  - Deep vein thrombosis [Recovered/Resolved]
